FAERS Safety Report 4509027-2 (Version None)
Quarter: 2004Q4

REPORT INFORMATION
  Report Type: 
  Country: None (occurrence: None)
  Receive Date: 20041119
  Receipt Date: 20041119
  Transmission Date: 20050328
  Serious: Yes (Other)
  Sender: FDA-Public Use
  Company Number: None

PATIENT
  Age: 86 Year
  Sex: Male
  Weight: 93.5 kg

DRUGS (3)
  1. FUROSEMIDE [Suspect]
     Indication: ANGINA UNSTABLE
     Dosage: 80 MG IVP X 2
     Route: 042
     Dates: start: 20041102
  2. FUROSEMIDE [Suspect]
     Indication: CARDIAC FAILURE CONGESTIVE
     Dosage: 80 MG IVP X 2
     Route: 042
     Dates: start: 20041102
  3. FUROSEMIDE [Suspect]
     Indication: DIURETIC THERAPY
     Dosage: 80 MG IVP X 2
     Route: 042
     Dates: start: 20041102

REACTIONS (1)
  - DEAFNESS [None]
